FAERS Safety Report 5270220-5 (Version None)
Quarter: 2007Q1

REPORT INFORMATION
  Report Type: 
  Country: None (occurrence: None)
  Receive Date: 20070320
  Receipt Date: 20070312
  Transmission Date: 20070707
  Serious: Yes (Other)
  Sender: FDA-Public Use
  Company Number: US-ROCHE-486735

PATIENT
  Age: 17 Year
  Sex: Female

DRUGS (3)
  1. ACCUTANE [Suspect]
     Indication: ACNE
     Route: 065
     Dates: start: 20060815, end: 20060915
  2. ACCUTANE [Suspect]
     Route: 065
     Dates: start: 20060915, end: 20070130
  3. BIRTH CONTROL PILL [Concomitant]
     Dosage: FORM REPORTED AS ^PILL^
     Route: 048

REACTIONS (3)
  - DEPRESSION [None]
  - HALLUCINATION [None]
  - SUICIDAL IDEATION [None]
